FAERS Safety Report 24542565 (Version 1)
Quarter: 2024Q4

REPORT INFORMATION
  Report Type: Spontaneous
  Country: US (occurrence: US)
  Receive Date: 20241024
  Receipt Date: 20241024
  Transmission Date: 20250115
  Serious: No
  Sender: TEIKOKU
  Company Number: US-TPU-TPU-2024-00536

PATIENT

DRUGS (2)
  1. LIDODERM [Suspect]
     Active Substance: LIDOCAINE
  2. LIDOCAINE PATCH [Suspect]
     Active Substance: LIDOCAINE

REACTIONS (4)
  - Dermatitis contact [Unknown]
  - Insurance issue [Not Recovered/Not Resolved]
  - Product use issue [Not Recovered/Not Resolved]
  - Pain [Not Recovered/Not Resolved]
